FAERS Safety Report 13247606 (Version 3)
Quarter: 2017Q4

REPORT INFORMATION
  Report Type: Spontaneous
  Country: US (occurrence: US)
  Receive Date: 20170217
  Receipt Date: 20171011
  Transmission Date: 20180320
  Serious: No
  Sender: FDA-Public Use
  Company Number: US-PFIZER INC-2017065333

PATIENT
  Age: 88 Year
  Sex: Male
  Weight: 100.7 kg

DRUGS (1)
  1. LYRICA [Suspect]
     Active Substance: PREGABALIN
     Indication: NEUROPATHY PERIPHERAL
     Dosage: 75 MG, 2X/DAY (SINCE 2 YEARS)
     Route: 048

REACTIONS (3)
  - Weight loss poor [Unknown]
  - Weight increased [Unknown]
  - Drug ineffective [Unknown]
